FAERS Safety Report 12930265 (Version 2)
Quarter: 2016Q4

REPORT INFORMATION
  Report Type: Spontaneous
  Country: DE (occurrence: DE)
  Receive Date: 20161110
  Receipt Date: 20161230
  Transmission Date: 20170207
  Serious: Yes (Hospitalization, Other)
  Sender: FDA-Public Use
  Company Number: DE-JNJFOC-20161105301

PATIENT
  Age: 48 Year
  Sex: Male
  Weight: 102 kg

DRUGS (12)
  1. SIMPONI [Suspect]
     Active Substance: GOLIMUMAB
     Indication: ANKYLOSING SPONDYLITIS
     Route: 058
     Dates: start: 20151124, end: 201607
  2. AMITRIPTYLIN [Concomitant]
     Active Substance: AMITRIPTYLINE
     Route: 065
  3. VOLTAREN [Concomitant]
     Active Substance: DICLOFENAC SODIUM
     Indication: HEADACHE
     Route: 065
     Dates: start: 2011
  4. VIANI [Concomitant]
     Active Substance: FLUTICASONE PROPIONATE\SALMETEROL XINAFOATE
     Indication: ASTHMA
     Route: 065
     Dates: start: 201607
  5. OXYCODON [Concomitant]
     Active Substance: OXYCODONE
     Route: 065
     Dates: start: 2011
  6. PANTOZOL [Concomitant]
     Active Substance: PANTOPRAZOLE SODIUM
     Route: 065
     Dates: start: 2011
  7. DOLOMIN [Concomitant]
     Indication: HEADACHE
     Route: 065
     Dates: start: 2011
  8. SUMATRIPTAN. [Concomitant]
     Active Substance: SUMATRIPTAN
     Indication: HEADACHE
     Dosage: PRN
     Route: 065
  9. MONTELUKAST [Concomitant]
     Active Substance: MONTELUKAST SODIUM
     Indication: CHRONIC OBSTRUCTIVE PULMONARY DISEASE
     Route: 065
     Dates: start: 201607
  10. VIANI [Concomitant]
     Active Substance: FLUTICASONE PROPIONATE\SALMETEROL XINAFOATE
     Indication: CHRONIC OBSTRUCTIVE PULMONARY DISEASE
     Route: 065
     Dates: start: 201607
  11. KATADOLON [Concomitant]
     Active Substance: FLUPIRTINE
     Route: 065
  12. MONTELUKAST [Concomitant]
     Active Substance: MONTELUKAST SODIUM
     Indication: ASTHMA
     Route: 065
     Dates: start: 201607

REACTIONS (6)
  - Hypokalaemia [Unknown]
  - Congestive cardiomyopathy [Not Recovered/Not Resolved]
  - Leriche syndrome [Recovered/Resolved]
  - Cardiac failure [Not Recovered/Not Resolved]
  - Renal infarct [Unknown]
  - Acute kidney injury [Unknown]

NARRATIVE: CASE EVENT DATE: 20160803
